FAERS Safety Report 5930702-7 (Version None)
Quarter: 2008Q4

REPORT INFORMATION
  Report Type: 
  Country: None (occurrence: None)
  Receive Date: 20081024
  Receipt Date: 20081024
  Transmission Date: 20090506
  Serious: Yes (Hospitalization)
  Sender: FDA-Public Use
  Company Number: None

PATIENT
  Sex: Female
  Weight: 82.9 kg

DRUGS (9)
  1. VINORELBINE [Suspect]
     Indication: BREAST CANCER
     Dosage: 25MG/M2 WEEKLY IV
     Route: 042
     Dates: start: 20080520, end: 20081014
  2. CLONAZEPAM [Concomitant]
  3. COMPAZINE [Concomitant]
  4. EFFEXOR [Concomitant]
  5. LORAZEPAM [Concomitant]
  6. ZOSTORETIC [Concomitant]
  7. LEVAQUIN [Concomitant]
  8. BEVACIZUMAB [Concomitant]
  9. HERCOPTIN IV [Concomitant]

REACTIONS (6)
  - MALAISE [None]
  - NEUTROPENIA [None]
  - OROPHARYNGEAL PAIN [None]
  - PYREXIA [None]
  - SINUS HEADACHE [None]
  - SINUSITIS [None]
